FAERS Safety Report 8325569-6 (Version None)
Quarter: 2012Q2

REPORT INFORMATION
  Report Type: 
  Country: None (occurrence: None)
  Receive Date: 20120501
  Receipt Date: 20120420
  Transmission Date: 20120825
  Serious: Yes (Hospitalization)
  Sender: FDA-Public Use
  Company Number: US-JNJFOC-20110410268

PATIENT
  Sex: Male
  Weight: 66.8 kg

DRUGS (9)
  1. REMICADE [Suspect]
     Indication: CROHN'S DISEASE
     Route: 042
     Dates: start: 20100621
  2. REMICADE [Suspect]
     Route: 042
     Dates: start: 20100920, end: 20100920
  3. HUMIRA [Concomitant]
  4. HUMIRA [Concomitant]
     Dates: start: 20110420
  5. CALTRATE D [Concomitant]
  6. PROBIOTICS [Concomitant]
  7. ANTIBIOTICS [Concomitant]
     Indication: INFLAMMATORY BOWEL DISEASE
  8. OXYCODONE AND ACETAMINOPHEN [Concomitant]
  9. MULTI-VITAMINS [Concomitant]

REACTIONS (2)
  - CROHN'S DISEASE [None]
  - ANAL FISTULA [None]
